FAERS Safety Report 25450741 (Version 1)
Quarter: 2025Q2

REPORT INFORMATION
  Report Type: Spontaneous
  Country: NL (occurrence: NL)
  Receive Date: 20250618
  Receipt Date: 20250618
  Transmission Date: 20250716
  Serious: Yes (Other)
  Sender: AMGEN
  Company Number: NL-AMGEN-NLDSP2025115726

PATIENT
  Sex: Female

DRUGS (1)
  1. PROLIA [Suspect]
     Active Substance: DENOSUMAB
     Indication: Bone giant cell tumour benign
     Route: 026

REACTIONS (3)
  - Bone giant cell tumour benign [Unknown]
  - Maternal exposure during pregnancy [Unknown]
  - Off label use [Unknown]
